FAERS Safety Report 9559323 (Version 1)
Quarter: 2013Q3

REPORT INFORMATION
  Report Type: Spontaneous
  Country: US (occurrence: None)
  Receive Date: 20130925
  Receipt Date: 20130925
  Transmission Date: 20140515
  Serious: Yes (Hospitalization, Other)
  Sender: FDA-Public Use
  Company Number: UTC-037721

PATIENT
  Age: 50 Year
  Sex: Female
  Weight: 99.9 kg

DRUGS (3)
  1. TYVASO [Suspect]
     Indication: COR PULMONALE CHRONIC
     Dosage: 18-72 MCGS (4 IN 1 D), INHALATION
     Route: 055
     Dates: start: 20120702
  2. LETAIRIS [Suspect]
     Indication: PULMONARY HYPERTENSION
     Dosage: 10 MG (10 MG, 1 IN 1 D), ORAL
     Route: 048
     Dates: start: 20120417
  3. LETAIRIS [Suspect]
     Indication: DRUG ABUSE
     Dosage: 10 MG (10 MG, 1 IN 1 D), ORAL
     Route: 048
     Dates: start: 20120417

REACTIONS (5)
  - Diabetes mellitus [None]
  - Nasal congestion [None]
  - Cardiac failure congestive [None]
  - Fluid retention [None]
  - Cough [None]
